FAERS Safety Report 6519811-1 (Version None)
Quarter: 2009Q4

REPORT INFORMATION
  Report Type: 
  Country: None (occurrence: None)
  Receive Date: 20091228
  Receipt Date: 20091228
  Transmission Date: 20100525
  Serious: No
  Sender: FDA-Public Use
  Company Number: None

PATIENT

DRUGS (1)
  1. SEPTOCAINE [Suspect]
     Dosage: 1.2 ML
     Dates: start: 20091022, end: 20091022

REACTIONS (4)
  - GLOSSODYNIA [None]
  - HYPOAESTHESIA ORAL [None]
  - NERVE INJURY [None]
  - PARAESTHESIA ORAL [None]
